FAERS Safety Report 5942911-1 (Version None)
Quarter: 2008Q4

REPORT INFORMATION
  Report Type: 
  Country: None (occurrence: None)
  Receive Date: 20081103
  Receipt Date: 20081020
  Transmission Date: 20090506
  Serious: Yes (Hospitalization)
  Sender: FDA-Public Use
  Company Number: 230846K08USA

PATIENT
  Age: 43 Year
  Sex: Male
  Weight: 108 kg

DRUGS (6)
  1. REBIF [Suspect]
     Indication: MULTIPLE SCLEROSIS
     Dosage: 44 MCG, 3 IN 1 WEEKS, SUBCUTANEOUS
     Route: 058
     Dates: start: 20050713
  2. TOPAMAX [Concomitant]
  3. ASPIRIN [Concomitant]
  4. DARVOCET [Concomitant]
  5. DARVOCET [Concomitant]
  6. AMBIEN [Concomitant]

REACTIONS (4)
  - CONSTIPATION [None]
  - LARGE INTESTINE PERFORATION [None]
  - MEDICAL DEVICE COMPLICATION [None]
  - MULTIPLE SCLEROSIS [None]
